FAERS Safety Report 6424442-8 (Version None)
Quarter: 2009Q4

REPORT INFORMATION
  Report Type: 
  Country: None (occurrence: None)
  Receive Date: 20091103
  Receipt Date: 20091029
  Transmission Date: 20100525
  Serious: Yes (Hospitalization)
  Sender: FDA-Public Use
  Company Number: US-RB-023865-09

PATIENT
  Age: 84 Year
  Sex: Male

DRUGS (2)
  1. MUCINEX [Suspect]
     Indication: INCREASED UPPER AIRWAY SECRETION
     Route: 048
  2. APANPRANOL [Suspect]
     Indication: BLOOD PRESSURE

REACTIONS (2)
  - MALLORY-WEISS SYNDROME [None]
  - VOMITING [None]
